FAERS Safety Report 5567426-4 (Version None)
Quarter: 2007Q4

REPORT INFORMATION
  Report Type: 
  Country: None (occurrence: None)
  Receive Date: 20071219
  Receipt Date: 20071207
  Transmission Date: 20080405
  Serious: Yes (Hospitalization)
  Sender: FDA-Public Use
  Company Number: US-GILEAD-2007-0014542

PATIENT
  Sex: Female
  Weight: 90.346 kg

DRUGS (1)
  1. AMBRISENTAN [Suspect]
     Indication: PULMONARY HYPERTENSION
     Dates: start: 20070927, end: 20071205

REACTIONS (2)
  - MIGRAINE [None]
  - SICKLE CELL ANAEMIA WITH CRISIS [None]
